FAERS Safety Report 22006841 (Version 1)
Quarter: 2023Q1

REPORT INFORMATION
  Report Type: Spontaneous
  Country: PT (occurrence: PT)
  Receive Date: 20230217
  Receipt Date: 20230217
  Transmission Date: 20230418
  Serious: Yes (Other)
  Sender: FDA-Public Use
  Company Number: PT-GILEAD-2021-0553274

PATIENT
  Age: 54 Year
  Sex: Male

DRUGS (7)
  1. TRUVADA [Suspect]
     Active Substance: EMTRICITABINE\TENOFOVIR DISOPROXIL FUMARATE
     Indication: HIV infection
     Dosage: UNK
     Route: 065
  2. EMTRIVA [Suspect]
     Active Substance: EMTRICITABINE
     Indication: HIV infection
     Route: 065
     Dates: start: 2011
  3. VIREAD [Suspect]
     Active Substance: TENOFOVIR DISOPROXIL FUMARATE
     Indication: HIV infection
     Route: 065
     Dates: start: 2011
  4. RALTEGRAVIR [Suspect]
     Active Substance: RALTEGRAVIR
     Indication: HIV infection
     Route: 065
     Dates: start: 2011
  5. RITONAVIR [Suspect]
     Active Substance: RITONAVIR
     Indication: HIV-2 infection
     Route: 065
  6. PREZISTA [Suspect]
     Active Substance: DARUNAVIR ETHANOLATE
     Indication: HIV-2 infection
     Route: 065
  7. DARUNAVIR\RITONAVIR [Concomitant]
     Active Substance: DARUNAVIR\RITONAVIR

REACTIONS (4)
  - Virologic failure [Unknown]
  - Genotype drug resistance test positive [Unknown]
  - Drug resistance [Unknown]
  - Virologic failure [Unknown]

NARRATIVE: CASE EVENT DATE: 20190201
